FAERS Safety Report 6151198-9 (Version None)
Quarter: 2009Q2

REPORT INFORMATION
  Report Type: 
  Country: None (occurrence: None)
  Receive Date: 20090410
  Receipt Date: 20090331
  Transmission Date: 20091009
  Serious: Yes (Other)
  Sender: FDA-Public Use
  Company Number: US-JNJFOC-20090301481

PATIENT
  Sex: Male
  Weight: 68.04 kg

DRUGS (5)
  1. REMICADE [Suspect]
     Indication: PSORIASIS
     Route: 042
  2. METHOTREXATE [Concomitant]
  3. DIOVAN [Concomitant]
  4. PREDNISONE [Concomitant]
  5. CELEBREX [Concomitant]

REACTIONS (2)
  - GENITAL LESION [None]
  - PSORIASIS [None]
